FAERS Safety Report 25904024 (Version 1)
Quarter: 2025Q4

REPORT INFORMATION
  Report Type: Spontaneous
  Country: CN (occurrence: CN)
  Receive Date: 20251010
  Receipt Date: 20251010
  Transmission Date: 20260117
  Serious: Yes (Life-Threatening)
  Sender: ROCHE
  Company Number: CN-ROCHE-10000400150

PATIENT
  Age: 71 Year
  Sex: Female

DRUGS (3)
  1. GAZYVA [Suspect]
     Active Substance: OBINUTUZUMAB
     Indication: Follicular lymphoma
     Route: 042
     Dates: start: 20250801, end: 20250801
  2. ATORVASTATIN CALCIUM [Concomitant]
     Active Substance: ATORVASTATIN CALCIUM
     Route: 048
     Dates: start: 20250802, end: 20250822
  3. BRUKINSA [Concomitant]
     Active Substance: ZANUBRUTINIB
     Route: 048
     Dates: start: 20250801, end: 20250824

REACTIONS (6)
  - Chills [Recovering/Resolving]
  - Oropharyngeal spasm [Recovering/Resolving]
  - Dyspnoea [Recovering/Resolving]
  - Body temperature increased [Unknown]
  - Temperature intolerance [Unknown]
  - Blood pressure decreased [Unknown]

NARRATIVE: CASE EVENT DATE: 20250801
